FAERS Safety Report 9098682 (Version 1)
Quarter: 2013Q1

REPORT INFORMATION
  Report Type: Spontaneous
  Country: US (occurrence: US)
  Receive Date: 20130213
  Receipt Date: 20130213
  Transmission Date: 20140127
  Serious: No
  Sender: FDA-Public Use
  Company Number: US-ALLERGAN-1300059US

PATIENT
  Age: 7 Year
  Sex: Male

DRUGS (3)
  1. LASTACAFT [Suspect]
     Indication: EYE ALLERGY
     Dosage: 1 GTT OU QD
     Route: 047
     Dates: start: 20121229
  2. EX LAX [Concomitant]
     Indication: CONSTIPATION
     Dosage: UNK, PRN
     Route: 048
  3. DULCOLAX [Concomitant]
     Indication: CONSTIPATION
     Dosage: UNK, PRN

REACTIONS (4)
  - Malaise [Recovering/Resolving]
  - Headache [Recovering/Resolving]
  - Pyrexia [Recovering/Resolving]
  - Eye pain [Recovering/Resolving]
